FAERS Safety Report 13156435 (Version 1)
Quarter: 2017Q1

REPORT INFORMATION
  Report Type: Report from Study
  Country: None (occurrence: GB)
  Receive Date: 20170126
  Receipt Date: 20170126
  Transmission Date: 20170428
  Serious: Yes (Other)
  Sender: FDA-Public Use
  Company Number: GB-ABBVIE-17P-167-1854560-00

PATIENT
  Age: 56 Year
  Sex: Male

DRUGS (1)
  1. HUMIRA [Suspect]
     Active Substance: ADALIMUMAB
     Indication: PSORIATIC ARTHROPATHY
     Route: 058
     Dates: start: 201611

REACTIONS (4)
  - Abdominal pain [Unknown]
  - Blood urine present [Unknown]
  - Chromaturia [Unknown]
  - Protein urine present [Unknown]

NARRATIVE: CASE EVENT DATE: 20161222
